FAERS Safety Report 7568822-6 (Version None)
Quarter: 2011Q2

REPORT INFORMATION
  Report Type: 
  Country: None (occurrence: None)
  Receive Date: 20110623
  Receipt Date: 20110621
  Transmission Date: 20111010
  Serious: Yes (Other)
  Sender: FDA-Public Use
  Company Number: BR-PFIZER INC-2011123672

PATIENT
  Age: 47 Year
  Sex: Female
  Weight: 57 kg

DRUGS (4)
  1. VARENICLINE TARTRATE [Suspect]
     Dosage: 0.5 MG, 2X/DAY
     Route: 048
     Dates: start: 20110601, end: 20110601
  2. VARENICLINE TARTRATE [Suspect]
     Indication: SMOKING CESSATION THERAPY
     Dosage: 0.5 MG, 1X/DAY
     Route: 048
     Dates: start: 20110603, end: 20110601
  3. VARENICLINE TARTRATE [Suspect]
     Dosage: 1 MG, 2X/DAY
     Route: 048
     Dates: start: 20110601, end: 20110613
  4. SOMALIUM [Suspect]
     Indication: DEPRESSION
     Dosage: 6 MG, PER DAY
     Route: 048
     Dates: start: 19970101

REACTIONS (8)
  - DRUG DEPENDENCE [None]
  - THROAT TIGHTNESS [None]
  - CHEST PAIN [None]
  - DIZZINESS [None]
  - FEELING ABNORMAL [None]
  - TREMOR [None]
  - AGITATION [None]
  - DISTURBANCE IN ATTENTION [None]
